FAERS Safety Report 19284785 (Version 1)
Quarter: 2021Q2

REPORT INFORMATION
  Report Type: Spontaneous
  Country: US (occurrence: US)
  Receive Date: 20210521
  Receipt Date: 20210521
  Transmission Date: 20210717
  Serious: No
  Sender: FDA-Public Use
  Company Number: US-BAYER-2021-144525

PATIENT
  Age: 37 Year
  Sex: Male

DRUGS (2)
  1. CLARITIN [Suspect]
     Active Substance: LORATADINE
     Dosage: 1 DF
     Route: 048
     Dates: start: 20210518
  2. CLARITIN [Suspect]
     Active Substance: LORATADINE
     Dosage: 1 DF
     Route: 048
     Dates: start: 20210518

REACTIONS (1)
  - Wrong dose [Not Recovered/Not Resolved]

NARRATIVE: CASE EVENT DATE: 20210518
